FAERS Safety Report 25457545 (Version 2)
Quarter: 2025Q3

REPORT INFORMATION
  Report Type: Spontaneous
  Country: CA (occurrence: CA)
  Receive Date: 20250619
  Receipt Date: 20250916
  Transmission Date: 20251021
  Serious: Yes (Hospitalization, Other)
  Sender: ASTELLAS
  Company Number: CA-ASTELLAS-2025-AER-031954

PATIENT
  Age: 76 Year
  Sex: Male
  Weight: 88 kg

DRUGS (4)
  1. XTANDI [Suspect]
     Active Substance: ENZALUTAMIDE
     Indication: Prostate cancer
     Route: 048
     Dates: start: 20240202, end: 20241130
  2. MYRBETRIQ [Concomitant]
     Active Substance: MIRABEGRON
     Indication: Product used for unknown indication
     Dosage: TABLET (EXTENDED RELEASE)
     Route: 065
  3. VITAMIN D [Concomitant]
     Active Substance: VITAMIN D NOS
     Indication: Product used for unknown indication
     Route: 065
  4. BISOPROLOL [Concomitant]
     Active Substance: BISOPROLOL
     Indication: Product used for unknown indication
     Route: 065

REACTIONS (6)
  - Sepsis [Recovering/Resolving]
  - Arthralgia [Recovering/Resolving]
  - Hypotension [Recovering/Resolving]
  - Myalgia [Recovering/Resolving]
  - Pyrexia [Recovering/Resolving]
  - Enterococcus test positive [Recovering/Resolving]

NARRATIVE: CASE EVENT DATE: 20241125
